FAERS Safety Report 11064534 (Version 1)
Quarter: 2015Q2

REPORT INFORMATION
  Report Type: Spontaneous
  Country: US (occurrence: US)
  Receive Date: 20150424
  Receipt Date: 20150424
  Transmission Date: 20150821
  Serious: No
  Sender: FDA-Public Use
  Company Number: US-GLAXOSMITHKLINE-US2015GSK056155

PATIENT
  Age: 54 Year
  Sex: Male

DRUGS (3)
  1. SORIATANE [Suspect]
     Active Substance: ACITRETIN
     Indication: PSORIASIS
  2. ACITRETIN. [Suspect]
     Active Substance: ACITRETIN
     Indication: PSORIASIS
     Dosage: UNK
     Dates: start: 201108, end: 201501
  3. ACITRETIN. [Suspect]
     Active Substance: ACITRETIN
     Dosage: UNK
     Dates: start: 201503

REACTIONS (4)
  - Knee operation [Recovered/Resolved]
  - Scar [Unknown]
  - Rash macular [Unknown]
  - Skin exfoliation [Unknown]

NARRATIVE: CASE EVENT DATE: 201103
